FAERS Safety Report 10329509 (Version 1)
Quarter: 2014Q3

REPORT INFORMATION
  Report Type: Spontaneous
  Country: US (occurrence: None)
  Receive Date: 20140718
  Receipt Date: 20140718
  Transmission Date: 20150326
  Serious: Yes (Hospitalization, Disabling)
  Sender: FDA-Public Use
  Company Number: None

PATIENT
  Age: 72 Year
  Sex: Female

DRUGS (9)
  1. DETROL LA [Concomitant]
     Active Substance: TOLTERODINE TARTRATE
  2. PROLIA [Suspect]
     Active Substance: DENOSUMAB
     Indication: OSTEOPOROSIS
     Route: 058
     Dates: start: 20140115
  3. MULTIVITAMIN [Concomitant]
     Active Substance: VITAMINS
  4. LORAZEPAM. [Concomitant]
     Active Substance: LORAZEPAM
  5. REMICADE [Concomitant]
     Active Substance: INFLIXIMAB
  6. HYDROCHLOROTHIAZIDE. [Concomitant]
     Active Substance: HYDROCHLOROTHIAZIDE
  7. ENBREL [Concomitant]
     Active Substance: ETANERCEPT
  8. SENNA-S [Concomitant]
     Active Substance: DOCUSATE SODIUM\SENNOSIDES
  9. AMOXICILLIN. [Concomitant]
     Active Substance: AMOXICILLIN

REACTIONS (2)
  - Hip fracture [None]
  - Cardio-respiratory arrest [None]

NARRATIVE: CASE EVENT DATE: 20140411
